FAERS Safety Report 5932897-8 (Version None)
Quarter: 2008Q4

REPORT INFORMATION
  Report Type: 
  Country: None (occurrence: None)
  Receive Date: 20081028
  Receipt Date: 20081017
  Transmission Date: 20090506
  Serious: Yes (Hospitalization)
  Sender: FDA-Public Use
  Company Number: US-AVENTIS-200812269EU

PATIENT
  Age: 66 Year
  Sex: Male
  Weight: 99.1 kg

DRUGS (11)
  1. LASIX [Suspect]
     Indication: DRUG USE FOR UNKNOWN INDICATION
  2. CODE UNBROKEN [Suspect]
     Indication: ATRIAL FIBRILLATION
     Route: 048
     Dates: start: 20071024
  3. METOLAZONE [Suspect]
  4. POTASSIUM CHLORIDE [Concomitant]
  5. ZOCOR [Concomitant]
  6. LISINOPRIL [Concomitant]
  7. ZETIA [Concomitant]
  8. HYTRIN [Concomitant]
  9. NORVASC [Concomitant]
  10. WARFARIN SODIUM [Concomitant]
  11. CLARITIN [Concomitant]

REACTIONS (1)
  - SYNCOPE [None]
